FAERS Safety Report 22000365 (Version 2)
Quarter: 2023Q2

REPORT INFORMATION
  Report Type: Spontaneous
  Country: US (occurrence: US)
  Receive Date: 20230216
  Receipt Date: 20230407
  Transmission Date: 20230722
  Serious: No
  Sender: FDA-Public Use
  Company Number: US-PFIZER INC-PV202300028700

PATIENT
  Age: 68 Year
  Sex: Female
  Weight: 67.131 kg

DRUGS (3)
  1. IBRANCE [Suspect]
     Active Substance: PALBOCICLIB
     Indication: Breast cancer female
     Dosage: 125 MG, CYCLIC (TAKE 1 TAB P.O. FOR 14 DAYS AND HOLD FOR 14 DAYS)
     Route: 048
     Dates: start: 20200714
  2. IBRANCE [Suspect]
     Active Substance: PALBOCICLIB
     Dosage: 125 MG, CYCLIC, (2 WEEKS ON, 2 WEEKS OFF)
  3. FULVESTRANT [Concomitant]
     Active Substance: FULVESTRANT
     Dosage: 25 MG
     Dates: start: 20200714

REACTIONS (2)
  - Antibody test abnormal [Unknown]
  - Asthenia [Recovering/Resolving]
